FAERS Safety Report 8941837 (Version 1)
Quarter: 2012Q4

REPORT INFORMATION
  Report Type: 
  Country: US (occurrence: US)
  Receive Date: 20121203
  Receipt Date: 20121203
  Transmission Date: 20130627
  Serious: Yes (Death)
  Sender: FDA-Public Use
  Company Number: US-ASTELLAS-2012US011591

PATIENT
  Sex: Female

DRUGS (2)
  1. PROGRAF [Suspect]
     Indication: LUNG TRANSPLANT
     Dosage: 3 mg, bid
     Route: 048
     Dates: start: 20080227, end: 20080307
  2. PROGRAF [Suspect]
     Dosage: 5 mg, bid
     Route: 048
     Dates: start: 20080307, end: 20120921

REACTIONS (2)
  - Off label use [Unknown]
  - Colon cancer [Fatal]
